FAERS Safety Report 9729496 (Version 1)
Quarter: 2013Q4

REPORT INFORMATION
  Report Type: Spontaneous
  Country: US (occurrence: US)
  Receive Date: 20131204
  Receipt Date: 20131204
  Transmission Date: 20140711
  Serious: No
  Sender: FDA-Public Use
  Company Number: US-GILEAD-2009-0022031

PATIENT
  Age: 73 Year
  Sex: Female
  Weight: 77.11 kg

DRUGS (8)
  1. LETAIRIS [Suspect]
     Indication: PULMONARY ARTERIAL HYPERTENSION
     Route: 048
     Dates: start: 20071102
  2. METOCLOPRAMIDE [Concomitant]
  3. COUMADIN [Concomitant]
  4. DIOVAN [Concomitant]
  5. REVATIO [Concomitant]
  6. EFFEXOR [Concomitant]
  7. ALLEGRA-D 12 HOUR [Concomitant]
  8. BL CALCIUM 500 [Concomitant]

REACTIONS (1)
  - Diarrhoea [Unknown]
